FAERS Safety Report 6302248-8 (Version None)
Quarter: 2009Q3

REPORT INFORMATION
  Report Type: 
  Country: None (occurrence: None)
  Receive Date: 20090810
  Receipt Date: 20090729
  Transmission Date: 20100115
  Serious: Yes (Other)
  Sender: FDA-Public Use
  Company Number: GB-RANBAXY-2009RR-26094

PATIENT
  Age: 63 Year
  Sex: Female

DRUGS (5)
  1. LORAZEPAM [Suspect]
     Indication: INSOMNIA
     Dosage: 0.5 MG, QD
  2. TEMAZEPAM [Suspect]
     Indication: INSOMNIA
     Dosage: 10 MG, QD
  3. TEMAZEPAM [Suspect]
     Dosage: 20 MG, QD
  4. ORAMORPH SR [Concomitant]
  5. AMITRIPTYLINE [Concomitant]
     Dosage: UNK

REACTIONS (2)
  - RESPIRATORY FAILURE [None]
  - SLEEP APNOEA SYNDROME [None]
